FAERS Safety Report 14922066 (Version 2)
Quarter: 2018Q3

REPORT INFORMATION
  Report Type: Spontaneous
  Country: US (occurrence: US)
  Receive Date: 20180522
  Receipt Date: 20180705
  Transmission Date: 20181010
  Serious: Yes (Hospitalization)
  Sender: FDA-Public Use
  Company Number: US-ASTRAZENECA-2018SE65334

PATIENT
  Age: 29018 Day
  Sex: Female
  Weight: 56.7 kg

DRUGS (4)
  1. ALBUTEROL NEBILIZER [Concomitant]
     Indication: CHRONIC OBSTRUCTIVE PULMONARY DISEASE
     Route: 055
  2. BUDESONIDE. [Suspect]
     Active Substance: BUDESONIDE
     Indication: CHRONIC OBSTRUCTIVE PULMONARY DISEASE
     Dosage: 0.5 MG / 2 ML EVERY 12 HOURS
     Route: 055
  3. PERFOROMIST [Concomitant]
     Active Substance: FORMOTEROL FUMARATE DIHYDRATE
     Indication: CHRONIC OBSTRUCTIVE PULMONARY DISEASE
     Dosage: 20 MCG/2 ML UD 180 UD, TWO TIMES A DAY
     Route: 055
  4. TUDORZA PRESSAIR [Suspect]
     Active Substance: ACLIDINIUM BROMIDE
     Indication: CHRONIC OBSTRUCTIVE PULMONARY DISEASE
     Dosage: 400 MCG 1 PUFF TWICE A DAY
     Route: 055

REACTIONS (10)
  - Wrist fracture [Unknown]
  - Off label use [Not Recovered/Not Resolved]
  - Device malfunction [Unknown]
  - Fall [Recovered/Resolved]
  - Visual acuity reduced [Not Recovered/Not Resolved]
  - Pneumonia [Recovered/Resolved]
  - Pelvic fracture [Unknown]
  - Drug dose omission [Not Recovered/Not Resolved]
  - Product use in unapproved indication [Not Recovered/Not Resolved]
  - Drug administered to patient of inappropriate age [Not Recovered/Not Resolved]

NARRATIVE: CASE EVENT DATE: 20180513
